FAERS Safety Report 23404550 (Version 1)
Quarter: 2024Q1

REPORT INFORMATION
  Report Type: Spontaneous
  Country: US (occurrence: None)
  Receive Date: 20240112
  Receipt Date: 20240112
  Transmission Date: 20240410
  Serious: Yes (Hospitalization)
  Sender: FDA-Public Use
  Company Number: None

PATIENT
  Age: 12 Year
  Sex: Female
  Weight: 51.4 kg

DRUGS (8)
  1. VANCOMYCIN [Suspect]
     Active Substance: VANCOMYCIN
     Indication: Antibiotic prophylaxis
     Dosage: FREQUENCY : ONCE;?
     Route: 042
     Dates: start: 20240110, end: 20240110
  2. CEFEPIME [Suspect]
     Active Substance: CEFEPIME HYDROCHLORIDE
  3. EPINEPHRINE [Concomitant]
     Active Substance: EPINEPHRINE
  4. DIPHENHYDRAMINE [Concomitant]
     Active Substance: DIPHENHYDRAMINE
  5. DEXAMETHASONE [Concomitant]
     Active Substance: DEXAMETHASONE
  6. ALBUTERNOL [Concomitant]
  7. FENTANYL [Concomitant]
     Active Substance: FENTANYL\FENTANYL CITRATE
  8. ROCURONIUM [Concomitant]
     Active Substance: ROCURONIUM BROMIDE

REACTIONS (5)
  - Wheezing [None]
  - Erythema [None]
  - Hypotension [None]
  - Oxygen saturation decreased [None]
  - Hypoventilation [None]

NARRATIVE: CASE EVENT DATE: 20240110
